FAERS Safety Report 24888769 (Version 1)
Quarter: 2025Q1

REPORT INFORMATION
  Report Type: Spontaneous
  Country: US (occurrence: US)
  Receive Date: 20250127
  Receipt Date: 20250127
  Transmission Date: 20250408
  Serious: Yes (Hospitalization, Other)
  Sender: NOVO NORDISK
  Company Number: US-NOVOPROD-1355219

PATIENT
  Age: 65 Year
  Sex: Male

DRUGS (1)
  1. WEGOVY [Suspect]
     Active Substance: SEMAGLUTIDE
     Indication: Weight control
     Dosage: 1.7 MG, QW
     Route: 058
     Dates: start: 202408

REACTIONS (9)
  - Fall [Recovered/Resolved]
  - Patella fracture [Unknown]
  - Corneal disorder [Recovering/Resolving]
  - Vitreous injury [Recovering/Resolving]
  - Viral load increased [Recovering/Resolving]
  - Burns third degree [Unknown]
  - Vitreous floaters [Recovering/Resolving]
  - Eye swelling [Recovering/Resolving]
  - Inappropriate schedule of product administration [Unknown]

NARRATIVE: CASE EVENT DATE: 20240801
